FAERS Safety Report 7386085-1 (Version None)
Quarter: 2011Q1

REPORT INFORMATION
  Report Type: 
  Country: None (occurrence: None)
  Receive Date: 20110331
  Receipt Date: 20110325
  Transmission Date: 20110831
  Serious: Yes (Hospitalization)
  Sender: FDA-Public Use
  Company Number: NL-AMGEN-NLDSP2011016313

PATIENT
  Age: 57 Year
  Sex: Female

DRUGS (10)
  1. SIMVASTATIN [Concomitant]
  2. LIDOCAINE [Concomitant]
  3. PANTOPRAZOL                        /01263202/ [Concomitant]
  4. AMOXI                              /00249601/ [Concomitant]
  5. CIPROFLOXACIN HCL [Concomitant]
  6. FLUCONAZOLE [Concomitant]
  7. PRIMPERAN                          /00041901/ [Concomitant]
  8. EMEND                              /01627301/ [Concomitant]
  9. NEULASTA [Suspect]
     Indication: PRODUCT USED FOR UNKNOWN INDICATION
     Dosage: UNK, Q3WK
     Route: 058
     Dates: start: 20110304
  10. MICARDIS [Concomitant]

REACTIONS (3)
  - WHITE BLOOD CELL COUNT DECREASED [None]
  - OROPHARYNGEAL BLISTERING [None]
  - FATIGUE [None]
